FAERS Safety Report 20155903 (Version 1)
Quarter: 2021Q4

REPORT INFORMATION
  Report Type: Spontaneous
  Country: US (occurrence: US)
  Receive Date: 20211207
  Receipt Date: 20211207
  Transmission Date: 20220303
  Serious: Yes (Other)
  Sender: FDA-Public Use
  Company Number: US-PFIZER INC-202101649400

PATIENT
  Age: 27 Year
  Sex: Male

DRUGS (2)
  1. TESTOSTERONE [Suspect]
     Active Substance: TESTOSTERONE
     Dosage: UNK
     Route: 048
  2. NANDROLONE [Suspect]
     Active Substance: NANDROLONE
     Dosage: UNK, WEEKLY, ONCE WEEKLY
     Route: 030

REACTIONS (1)
  - Drug-induced liver injury [Recovering/Resolving]
